FAERS Safety Report 9301419 (Version 2)
Quarter: 2013Q2

REPORT INFORMATION
  Report Type: Report from Study
  Country: US (occurrence: US)
  Receive Date: 20130521
  Receipt Date: 20130603
  Transmission Date: 20140414
  Serious: Yes (Death, Hospitalization, Other)
  Sender: FDA-Public Use
  Company Number: US-BRISTOL-MYERS SQUIBB COMPANY-18890798

PATIENT
  Age: 47 Year
  Sex: Male

DRUGS (3)
  1. YERVOY [Suspect]
     Indication: MALIGNANT MELANOMA
     Route: 042
     Dates: start: 20130502, end: 20130502
  2. NORMAL SALINE [Concomitant]
     Route: 042
     Dates: start: 20130504
  3. MORPHINE [Concomitant]
     Dosage: INJ

REACTIONS (6)
  - Multi-organ failure [Fatal]
  - Malignant neoplasm progression [Fatal]
  - Hyponatraemia [Unknown]
  - Aspartate aminotransferase increased [Unknown]
  - Alanine aminotransferase increased [Unknown]
  - Upper gastrointestinal haemorrhage [Unknown]
